FAERS Safety Report 5626108-0 (Version None)
Quarter: 2008Q1

REPORT INFORMATION
  Report Type: 
  Country: None (occurrence: None)
  Receive Date: 20080213
  Receipt Date: 20080213
  Transmission Date: 20080703
  Serious: Yes (Other)
  Sender: FDA-Public Use
  Company Number: None

PATIENT
  Sex: Male
  Weight: 83.4 kg

DRUGS (1)
  1. GADOLINIUM [Suspect]
     Dosage: 10ML

REACTIONS (3)
  - MALAISE [None]
  - NAUSEA [None]
  - VOMITING [None]
